FAERS Safety Report 13051363 (Version 1)
Quarter: 2016Q4

REPORT INFORMATION
  Report Type: Spontaneous
  Country: US (occurrence: US)
  Receive Date: 20161221
  Receipt Date: 20161221
  Transmission Date: 20170207
  Serious: No
  Sender: FDA-Public Use
  Company Number: None

PATIENT
  Age: 58 Year
  Sex: Male
  Weight: 99 kg

DRUGS (1)
  1. ATORVASTATIN DR REDDYS [Suspect]
     Active Substance: ATORVASTATIN CALCIUM
     Indication: HYPERLIPIDAEMIA
     Route: 048
     Dates: start: 20161116, end: 20161207

REACTIONS (4)
  - Pruritus generalised [None]
  - Therapy change [None]
  - Chromaturia [None]
  - Muscle enzyme increased [None]

NARRATIVE: CASE EVENT DATE: 20161206
